FAERS Safety Report 8353849-7 (Version None)
Quarter: 2012Q2

REPORT INFORMATION
  Report Type: 
  Country: None (occurrence: None)
  Receive Date: 20120511
  Receipt Date: 20120110
  Transmission Date: 20120825
  Serious: No
  Sender: FDA-Public Use
  Company Number: US-GLAXOSMITHKLINE-A0960779A

PATIENT
  Age: 39 Year
  Sex: Female

DRUGS (8)
  1. HERCEPTIN [Concomitant]
  2. ATIVAN [Concomitant]
  3. LAXATIVES [Suspect]
  4. ZOMETA [Concomitant]
  5. STOOL SOFTENERS [Suspect]
  6. STEROIDS [Concomitant]
  7. DILAUDID [Concomitant]
  8. TYKERB [Suspect]
     Indication: BREAST CANCER
     Dosage: 4TAB PER DAY
     Route: 048
     Dates: start: 20120104

REACTIONS (1)
  - DIARRHOEA [None]
